FAERS Safety Report 7336108-0 (Version None)
Quarter: 2011Q1

REPORT INFORMATION
  Report Type: 
  Country: None (occurrence: None)
  Receive Date: 20110301
  Receipt Date: 20110301
  Transmission Date: 20110831
  Serious: Yes (Hospitalization)
  Sender: FDA-Public Use
  Company Number: None

PATIENT
  Age: 83 Year
  Sex: Male
  Weight: 79 kg

DRUGS (1)
  1. MOXIFLOXACIN [Suspect]
     Indication: UPPER RESPIRATORY TRACT INFECTION
     Dosage: 400 MG EVERY DAY PO
     Route: 048
     Dates: start: 20110131, end: 20110203

REACTIONS (6)
  - SYNCOPE [None]
  - FALL [None]
  - DIARRHOEA [None]
  - CLOSTRIDIAL INFECTION [None]
  - HYPOPHAGIA [None]
  - ABDOMINAL PAIN [None]
